FAERS Safety Report 23080989 (Version 1)
Quarter: 2023Q4

REPORT INFORMATION
  Report Type: Spontaneous
  Country: IT (occurrence: IT)
  Receive Date: 20231018
  Receipt Date: 20231018
  Transmission Date: 20240109
  Serious: Yes (Other)
  Sender: FDA-Public Use
  Company Number: None

PATIENT
  Age: 63 Year
  Sex: Female
  Weight: 58 kg

DRUGS (1)
  1. BRODALUMAB [Suspect]
     Active Substance: BRODALUMAB
     Indication: Psoriatic arthropathy
     Dosage: 210 MG SUBCUTANEOUS INJECTIONS EVERY 14 DAYS
     Route: 058
     Dates: start: 2022, end: 202309

REACTIONS (3)
  - Psoriatic arthropathy [Unknown]
  - Skin exfoliation [Unknown]
  - Arthralgia [Unknown]

NARRATIVE: CASE EVENT DATE: 20230501
